FAERS Safety Report 24626238 (Version 1)
Quarter: 2024Q4

REPORT INFORMATION
  Report Type: Spontaneous
  Country: US (occurrence: US)
  Receive Date: 20241115
  Receipt Date: 20241115
  Transmission Date: 20250115
  Serious: No
  Sender: SANOFI AVENTIS
  Company Number: US-SA-2024SA315984

PATIENT
  Age: 26 Year
  Sex: Male

DRUGS (1)
  1. DUPILUMAB [Suspect]
     Active Substance: DUPILUMAB
     Indication: Nasal polyps
     Dosage: 300 MG, QOW
     Route: 058
     Dates: start: 20241004

REACTIONS (5)
  - Dry skin [Recovered/Resolved]
  - Anosmia [Not Recovered/Not Resolved]
  - Drainage [Not Recovered/Not Resolved]
  - Hypersensitivity [Unknown]
  - Nasal operation [Unknown]

NARRATIVE: CASE EVENT DATE: 20240101
